FAERS Safety Report 7939589-4 (Version None)
Quarter: 2011Q4

REPORT INFORMATION
  Report Type: 
  Country: None (occurrence: None)
  Receive Date: 20111125
  Receipt Date: 20110907
  Transmission Date: 20120403
  Serious: No
  Sender: FDA-Public Use
  Company Number: US-BAYER-2011-088982

PATIENT
  Age: 56 Year
  Sex: Female
  Weight: 57 kg

DRUGS (4)
  1. PROMETRIUM [Concomitant]
  2. IBUPROFEN (ADVIL) [Concomitant]
  3. NAPROXEN SODIUM AND PSEUDOEPHEDRINE HYDROCHLORIDE [Concomitant]
  4. ALEVE (CAPLET) [Suspect]
     Indication: BACK PAIN
     Dosage: 4 DF, QD
     Route: 048
     Dates: start: 20110801, end: 20110905

REACTIONS (4)
  - CONTUSION [None]
  - HEART RATE DECREASED [None]
  - HEART RATE INCREASED [None]
  - PALPITATIONS [None]
